FAERS Safety Report 13581097 (Version 6)
Quarter: 2020Q2

REPORT INFORMATION
  Report Type: Spontaneous
  Country: US (occurrence: US)
  Receive Date: 20170525
  Receipt Date: 20200422
  Transmission Date: 20200713
  Serious: Yes (Hospitalization, Other)
  Sender: FDA-Public Use
  Company Number: US-PFIZER INC-2017228217

PATIENT
  Age: 81 Year
  Sex: Female
  Weight: 68.5 kg

DRUGS (3)
  1. XELJANZ [Suspect]
     Active Substance: TOFACITINIB CITRATE
     Indication: RHEUMATOID ARTHRITIS
     Dosage: 5 MG, 2X/DAY
     Dates: start: 2012
  2. METHOTREXATE. [Concomitant]
     Active Substance: METHOTREXATE
     Dosage: 0.05 MG, WEEKLY
     Dates: start: 2014
  3. HYDROCODONE [Concomitant]
     Active Substance: HYDROCODONE
     Dosage: UNK
     Dates: start: 2016

REACTIONS (5)
  - Abdominal discomfort [Recovered/Resolved]
  - Influenza [Unknown]
  - Cough [Recovered/Resolved]
  - Gastritis bacterial [Recovered/Resolved]
  - Hypoacusis [Not Recovered/Not Resolved]

NARRATIVE: CASE EVENT DATE: 2017
